FAERS Safety Report 14361552 (Version 1)
Quarter: 2018Q1

REPORT INFORMATION
  Report Type: Spontaneous
  Country: US (occurrence: US)
  Receive Date: 20180108
  Receipt Date: 20180108
  Transmission Date: 20180509
  Serious: Yes (Other)
  Sender: FDA-Public Use
  Company Number: US-AMGEN-USASP2018001159

PATIENT

DRUGS (1)
  1. FILGRASTIM [Suspect]
     Active Substance: FILGRASTIM
     Indication: CYCLIC NEUTROPENIA
     Dosage: UNK, AT LEAST THREE TIMES PER WEEK FOR NEARLY 30 YEARS
     Route: 065

REACTIONS (1)
  - Immune thrombocytopenic purpura [Unknown]
